FAERS Safety Report 23558136 (Version 1)
Quarter: 2024Q1

REPORT INFORMATION
  Report Type: Spontaneous
  Country: BR (occurrence: BR)
  Receive Date: 20240223
  Receipt Date: 20240223
  Transmission Date: 20240409
  Serious: Yes (Other)
  Sender: FDA-Public Use
  Company Number: BR-CHEPLA-2024002252

PATIENT
  Sex: Female
  Weight: 46 kg

DRUGS (3)
  1. CLONAZEPAM [Suspect]
     Active Substance: CLONAZEPAM
     Indication: Labyrinthitis
     Dosage: STRENGTH:0.5 MG, START:APROX. 2009, STOP:APPROXIMATELY 2014???DAILY DOSE: 0.5 DOSAGE FORM
     Route: 048
     Dates: start: 2009, end: 2014
  2. CLONAZEPAM [Suspect]
     Active Substance: CLONAZEPAM
     Indication: Labyrinthitis
     Dosage: STRENGTH:0.5MG, MORE THAN 10 YEARS AGO,???DAILY DOSE: 1 DOSAGE FORM
     Route: 048
  3. CLONAZEPAM [Suspect]
     Active Substance: CLONAZEPAM
     Indication: Labyrinthitis
     Dosage: STRENGTH:0.25 MG;  START:MORE THAN 10 YEARS AGO, START:MORE THAN 10 YEARS AGO
     Route: 060

REACTIONS (4)
  - Systemic lupus erythematosus [Not Recovered/Not Resolved]
  - Dizziness [Recovered/Resolved]
  - Tinnitus [Recovered/Resolved]
  - Product use in unapproved indication [Not Recovered/Not Resolved]

NARRATIVE: CASE EVENT DATE: 20090101
